FAERS Safety Report 9270356 (Version 1)
Quarter: 2013Q2

REPORT INFORMATION
  Report Type: Spontaneous
  Country: US (occurrence: US)
  Receive Date: 20130503
  Receipt Date: 20130503
  Transmission Date: 20140414
  Serious: No
  Sender: FDA-Public Use
  Company Number: US-UCBSA-084804

PATIENT
  Age: 27 Year
  Sex: Male

DRUGS (1)
  1. VIMPAT [Suspect]
     Indication: CONVULSION
     Dosage: 2-1/2 OF THE 200 MG + 1-1/2 OF 50 MG IN THE A.M. AND P.M; STRENGTH: 200MG (5 TAB)+50 MG (3 TAB)

REACTIONS (7)
  - Convulsion [Unknown]
  - Heart rate increased [Unknown]
  - Alopecia [Unknown]
  - Depression [Unknown]
  - Pruritus [Unknown]
  - Memory impairment [Unknown]
  - Overdose [Unknown]
